FAERS Safety Report 15650495 (Version 1)
Quarter: 2018Q4

REPORT INFORMATION
  Report Type: Report from Study
  Country: US (occurrence: US)
  Receive Date: 20181123
  Receipt Date: 20181123
  Transmission Date: 20190205
  Serious: Yes (Other)
  Sender: FDA-Public Use
  Company Number: US-AMGEN-USASL2018165652

PATIENT
  Age: 72 Year
  Sex: Male

DRUGS (1)
  1. ENBREL [Suspect]
     Active Substance: ETANERCEPT
     Indication: PRODUCT USED FOR UNKNOWN INDICATION
     Dosage: UNK UNK, QWK
     Route: 065

REACTIONS (5)
  - Breath sounds abnormal [Unknown]
  - Sinus disorder [Unknown]
  - Skin ulcer [Unknown]
  - Pneumonia [Unknown]
  - Prostate cancer [Unknown]

NARRATIVE: CASE EVENT DATE: 2010
